FAERS Safety Report 17884030 (Version 1)
Quarter: 2020Q2

REPORT INFORMATION
  Report Type: Spontaneous
  Country: ES (occurrence: ES)
  Receive Date: 20200611
  Receipt Date: 20200611
  Transmission Date: 20200714
  Serious: Yes (Other)
  Sender: FDA-Public Use
  Company Number: ES-TEVA-2020-ES-1246772

PATIENT
  Age: 81 Year
  Sex: Male

DRUGS (8)
  1. TRAMADOL (2389A) [Suspect]
     Active Substance: TRAMADOL
     Indication: TENDONITIS
     Route: 048
     Dates: start: 20191115, end: 20191122
  2. KEPPRA 100MG/ML CONCENTRADO PARA SOLUCION PARA PERFUSION, 10 VIALES DE [Concomitant]
     Dosage: 1 G
     Route: 042
  3. ACETILSALICILICO ACIDO (176A) [Concomitant]
     Active Substance: ASPIRIN
     Dosage: 100 MG
     Route: 048
  4. IVABRADINA (2992A) [Concomitant]
     Active Substance: IVABRADINE
     Dosage: 5 MG
     Route: 048
  5. ATORVASTATINA (7400A) [Concomitant]
     Active Substance: ATORVASTATIN
     Dosage: 80 MG
     Route: 048
  6. HIDROFEROL 0,266 MG CAPSULAS BLANDAS , 5 C?PSULAS (BLISTER PVC/PVDC-AL [Concomitant]
     Dosage: 266 MCG
     Route: 048
  7. RAMIPRIL + HIDROCLOROTIAZIDA [Concomitant]
     Active Substance: HYDROCHLOROTHIAZIDE\RAMIPRIL
     Dosage: 1 DOSAGE FORMS
     Route: 048
  8. OMEPRAZOL (2141A) [Concomitant]
     Active Substance: OMEPRAZOLE
     Dosage: 20 MG
     Route: 048

REACTIONS (1)
  - Faecaloma [Recovered/Resolved]

NARRATIVE: CASE EVENT DATE: 20191122
